FAERS Safety Report 10370544 (Version 2)
Quarter: 2014Q3

REPORT INFORMATION
  Report Type: Spontaneous
  Country: BR (occurrence: BR)
  Receive Date: 20140808
  Receipt Date: 20140902
  Transmission Date: 20150326
  Serious: Yes (Other)
  Sender: FDA-Public Use
  Company Number: BR-SA-2014SA104094

PATIENT
  Age: 75 Year
  Sex: Male
  Weight: 90 kg

DRUGS (6)
  1. AMLODIPINE [Concomitant]
     Active Substance: AMLODIPINE BESYLATE
     Indication: HYPERTENSION
     Dosage: STRENGTH: 5 MG; 1 TABLET IN THE MORNING AND 1 AT NIGHT
     Route: 048
     Dates: start: 201404
  2. ENDOFOLIN [Concomitant]
     Active Substance: FOLIC ACID
     Indication: THROMBOCYTOPENIA
     Dosage: STRENGTH: 5 MG; 1 TABLET A DAY EXCEPT FOR MONDAY DUE TO TECNOMET
     Route: 048
     Dates: start: 201401
  3. SIILIF [Concomitant]
     Indication: MOBILITY DECREASED
     Dosage: STRENGTH: 100 MG; 1 TABLET ON LUNCH TIME
     Route: 048
     Dates: start: 201404
  4. ARAVA [Suspect]
     Active Substance: LEFLUNOMIDE
     Indication: RHEUMATOID ARTHRITIS
     Route: 048
     Dates: start: 201407
  5. LOSARTAN POTASSIUM. [Concomitant]
     Active Substance: LOSARTAN POTASSIUM
     Indication: HYPERTENSION
     Dosage: STRENGTH: 30 MG; 1 TABLET IN THE MORNING AND 1 AT NIGHT
     Route: 048
     Dates: start: 2011
  6. METHOTREXATE [Concomitant]
     Active Substance: METHOTREXATE
     Indication: PAIN
     Dosage: DOSE: 6 TABLETS OF 2.5 ON MONDAYS AND ONCE A WEEK
     Route: 048
     Dates: start: 201401

REACTIONS (3)
  - Abnormal behaviour [Not Recovered/Not Resolved]
  - Schizophrenia [Not Recovered/Not Resolved]
  - Speech disorder [Not Recovered/Not Resolved]

NARRATIVE: CASE EVENT DATE: 201407
